FAERS Safety Report 6655821-1 (Version None)
Quarter: 2010Q1

REPORT INFORMATION
  Report Type: 
  Country: None (occurrence: None)
  Receive Date: 20100329
  Receipt Date: 20100322
  Transmission Date: 20100710
  Serious: Yes (Hospitalization)
  Sender: FDA-Public Use
  Company Number: B0642027A

PATIENT

DRUGS (2)
  1. NIQUITIN CQ 4MG LOZENGE [Suspect]
     Indication: DRUG USE FOR UNKNOWN INDICATION
     Route: 002
  2. UNSPECIFIED MEDICATION [Concomitant]

REACTIONS (8)
  - CHEST PAIN [None]
  - DYSPNOEA [None]
  - GASTRIC DISORDER [None]
  - MOUTH ULCERATION [None]
  - OROPHARYNGEAL PAIN [None]
  - PANCREATIC DISORDER [None]
  - PRURITUS [None]
  - VOMITING [None]
